FAERS Safety Report 8679923 (Version 3)
Quarter: 2013Q3

REPORT INFORMATION
  Report Type: Report from Study
  Country: FR (occurrence: FR)
  Receive Date: 20120705
  Receipt Date: 20130923
  Transmission Date: 20140515
  Serious: Yes (Hospitalization, Other)
  Sender: FDA-Public Use
  Company Number: FR-009507513-2012SP035321

PATIENT
  Age: 49 Year
  Sex: Female
  Weight: 59.4 kg

DRUGS (16)
  1. BOCEPREVIR [Suspect]
     Indication: HEPATITIS C
     Dosage: 800 MG, TID
     Dates: start: 20120413, end: 20120622
  2. PEGINTERFERON ALFA-2B [Suspect]
     Indication: HEPATITIS C
     Dosage: 80 ?G, QW
     Dates: start: 20120316, end: 20120622
  3. RIBAVIRIN [Suspect]
     Indication: HEPATITIS C
     Dosage: 800 MG, QD
     Dates: start: 20120316, end: 20120622
  4. RIBAVIRIN [Suspect]
     Dosage: 600 MG, QD
     Dates: start: 20120607
  5. RIBAVIRIN [Suspect]
     Dosage: 400 MG, QD
     Dates: start: 20120620
  6. NEORECORMON [Concomitant]
     Indication: ANAEMIA
     Dosage: 30000 IU, BIW
     Dates: start: 20120426, end: 20120622
  7. RALTEGRAVIR [Concomitant]
     Indication: HIV INFECTION
     Dosage: 400 MG, BID
     Dates: start: 20111107
  8. EMTRIVA [Concomitant]
     Indication: HIV INFECTION
     Dosage: 50 MG, QD
     Dates: start: 20080418
  9. VIREAD [Concomitant]
     Indication: HIV INFECTION
     Dosage: 245 MG, QOD
     Dates: start: 20021002
  10. YASMINELLE [Concomitant]
     Indication: CONTRACEPTION
     Dosage: 1 DF, QD
     Dates: start: 20120329
  11. DEXERYL TABLETS [Concomitant]
     Indication: DRY SKIN
     Dosage: 1 DF, QD
     Dates: start: 20120426
  12. MYCOSTER [Concomitant]
     Indication: ONYCHOMYCOSIS
     Dosage: 1 DF, QD
     Dates: start: 20120103
  13. CELLUVISC [Concomitant]
     Indication: XEROSIS
     Dosage: 2 DF, QD
     Route: 047
  14. CARBOHYDRATES (UNSPECIFIED) (+) FAT (UNSPECIFIED) (+) MINERALS (UNSPEC [Concomitant]
     Indication: MALNUTRITION
     Dosage: 1 DF, BID
     Dates: start: 20120412
  15. DAFALGAN [Concomitant]
     Indication: INFLUENZA LIKE ILLNESS
     Dosage: 1000 MG, QD
     Dates: start: 20120412
  16. ISENTRESS [Concomitant]
     Indication: HIV INFECTION
     Dosage: 400 MG, UNK
     Dates: start: 20111107

REACTIONS (2)
  - Lung disorder [Recovered/Resolved]
  - Haemolytic anaemia [Recovered/Resolved]
